FAERS Safety Report 8609874 (Version 2)
Quarter: 2013Q4

REPORT INFORMATION
  Report Type: Spontaneous
  Country: US (occurrence: US)
  Receive Date: 20120612
  Receipt Date: 20131118
  Transmission Date: 20140711
  Serious: Yes (Other)
  Sender: FDA-Public Use
  Company Number: US-JNJFOC-20120601333

PATIENT
  Sex: Female
  Weight: 68.04 kg

DRUGS (6)
  1. DURAGESIC [Suspect]
     Indication: ARTHRITIS
     Route: 062
     Dates: start: 201205
  2. DURAGESIC [Suspect]
     Indication: ARTHRITIS
     Route: 062
  3. DURAGESIC [Suspect]
     Indication: NEUROPATHY PERIPHERAL
     Route: 062
     Dates: start: 201205
  4. DURAGESIC [Suspect]
     Indication: NEUROPATHY PERIPHERAL
     Route: 062
  5. DURAGESIC [Suspect]
     Indication: FIBROMYALGIA
     Route: 062
  6. DURAGESIC [Suspect]
     Indication: FIBROMYALGIA
     Route: 062
     Dates: start: 201205

REACTIONS (4)
  - Knee operation [Unknown]
  - Product adhesion issue [Unknown]
  - Wrong technique in drug usage process [Unknown]
  - Drug ineffective [Not Recovered/Not Resolved]
